FAERS Safety Report 5960769-1 (Version None)
Quarter: 2008Q4

REPORT INFORMATION
  Report Type: 
  Country: None (occurrence: None)
  Receive Date: 20081120
  Receipt Date: 20081112
  Transmission Date: 20090506
  Serious: Yes (Other)
  Sender: FDA-Public Use
  Company Number: JP-PFIZER INC-2008096344

PATIENT
  Age: 84 Year
  Sex: Female

DRUGS (5)
  1. HALCION [Suspect]
     Dosage: DAILY DOSE:.25MG
     Route: 048
  2. NORVASC [Concomitant]
     Route: 048
  3. CYANOCOBALAMIN [Concomitant]
  4. ALOSENN [Concomitant]
     Route: 048
  5. MYSLEE [Concomitant]
     Route: 048

REACTIONS (1)
  - VISUAL FIELD DEFECT [None]
